FAERS Safety Report 20956514 (Version 1)
Quarter: 2022Q2

REPORT INFORMATION
  Report Type: Spontaneous
  Country: DE (occurrence: DE)
  Receive Date: 20220614
  Receipt Date: 20220614
  Transmission Date: 20220721
  Serious: Yes (Other)
  Sender: FDA-Public Use
  Company Number: DE-NOVARTISPH-NVSC2022DE134220

PATIENT
  Sex: Female

DRUGS (2)
  1. MAYZENT [Suspect]
     Active Substance: SIPONIMOD
     Indication: Product used for unknown indication
     Dosage: UNK
     Route: 065
     Dates: start: 2021, end: 20220326
  2. MAYZENT [Suspect]
     Active Substance: SIPONIMOD
     Dosage: UNK
     Route: 065
     Dates: start: 20220602

REACTIONS (5)
  - Cerebrovascular accident [Unknown]
  - Oedema peripheral [Unknown]
  - Arthralgia [Not Recovered/Not Resolved]
  - Liver function test increased [Unknown]
  - Headache [Unknown]

NARRATIVE: CASE EVENT DATE: 20220320
